FAERS Safety Report 16062000 (Version 1)
Quarter: 2019Q1

REPORT INFORMATION
  Report Type: Spontaneous
  Country: US (occurrence: US)
  Receive Date: 20190312
  Receipt Date: 20190312
  Transmission Date: 20190418
  Serious: Yes (Hospitalization, Other)
  Sender: FDA-Public Use
  Company Number: US-PFIZER INC-2019100434

PATIENT
  Age: 68 Year
  Sex: Female
  Weight: 85.28 kg

DRUGS (1)
  1. SUTENT [Suspect]
     Active Substance: SUNITINIB MALATE
     Indication: RENAL CANCER
     Dosage: 50 MG, 1X/DAY
     Route: 048
     Dates: start: 20190103, end: 20190119

REACTIONS (9)
  - Liver injury [Unknown]
  - Malaise [Not Recovered/Not Resolved]
  - Stomatitis [Recovered/Resolved]
  - Asthenia [Recovering/Resolving]
  - Infection [Recovered/Resolved]
  - Chills [Unknown]
  - Headache [Unknown]
  - Pyrexia [Unknown]
  - Fatigue [Recovering/Resolving]

NARRATIVE: CASE EVENT DATE: 20190117
